FAERS Safety Report 8812257 (Version 1)
Quarter: 2012Q4

REPORT INFORMATION
  Report Type: 
  Country: US (occurrence: US)
  Receive Date: 20120927
  Receipt Date: 20120927
  Transmission Date: 20130627
  Serious: Yes (Death, Other)
  Sender: FDA-Public Use
  Company Number: US-ROCHE-1124331

PATIENT
  Age: 71 Year
  Sex: Male

DRUGS (2)
  1. AVASTIN [Suspect]
     Indication: RENAL CANCER
     Route: 065
  2. XELODA [Suspect]
     Indication: RENAL CANCER
     Route: 065
     Dates: start: 200307, end: 20040422

REACTIONS (7)
  - Death [Fatal]
  - Confusional state [Unknown]
  - Nausea [Unknown]
  - Vomiting [Unknown]
  - Diarrhoea [Unknown]
  - Disease progression [Unknown]
  - Metastases to central nervous system [Unknown]
